FAERS Safety Report 24767830 (Version 1)
Quarter: 2024Q4

REPORT INFORMATION
  Report Type: Spontaneous
  Country: US (occurrence: None)
  Receive Date: 20241222
  Receipt Date: 20241222
  Transmission Date: 20250115
  Serious: Yes (Other)
  Sender: Public
  Company Number: None

PATIENT
  Age: 18 Year
  Sex: Male
  Weight: 50 kg

DRUGS (8)
  1. ESOMEPRAZOLE [Suspect]
     Active Substance: ESOMEPRAZOLE
  2. LEVOSULPIRIDE [Suspect]
     Active Substance: LEVOSULPIRIDE
  3. FLUPENTIXOL\MELITRACEN [Suspect]
     Active Substance: FLUPENTIXOL\MELITRACEN
  4. ISOTRETINOIN [Suspect]
     Active Substance: ISOTRETINOIN
  5. ITOPRIDE [Suspect]
     Active Substance: ITOPRIDE
  6. BUSPIRONE [Suspect]
     Active Substance: BUSPIRONE HYDROCHLORIDE
  7. UNSPECIFIED INGREDIENT [Suspect]
     Active Substance: UNSPECIFIED INGREDIENT
  8. CHOLECALCIFEROL [Suspect]
     Active Substance: CHOLECALCIFEROL

REACTIONS (9)
  - Arthralgia [None]
  - Lip dry [None]
  - Anxiety [None]
  - Depression [None]
  - Libido decreased [None]
  - Erectile dysfunction [None]
  - Alanine aminotransferase increased [None]
  - Dizziness [None]
  - Sleep disorder [None]

NARRATIVE: CASE EVENT DATE: 20241001
